FAERS Safety Report 14255521 (Version 1)
Quarter: 2017Q4

REPORT INFORMATION
  Report Type: Spontaneous
  Country: US (occurrence: US)
  Receive Date: 20171206
  Receipt Date: 20171206
  Transmission Date: 20180321
  Serious: Yes (Other)
  Sender: FDA-Public Use
  Company Number: US-BAYER-2017-231583

PATIENT
  Age: 26 Year
  Sex: Female

DRUGS (2)
  1. MIRENA [Suspect]
     Active Substance: LEVONORGESTREL
     Indication: CONTRACEPTION
  2. MIRENA [Suspect]
     Active Substance: LEVONORGESTREL
     Indication: CONTRACEPTION
     Dosage: 20 MCG/24HR, CONT
     Route: 015
     Dates: start: 201602, end: 20171116

REACTIONS (5)
  - Vaginal haemorrhage [Recovered/Resolved]
  - Menorrhagia [None]
  - Genital haemorrhage [Not Recovered/Not Resolved]
  - Menstruation irregular [None]
  - Polymenorrhoea [None]

NARRATIVE: CASE EVENT DATE: 2017
